FAERS Safety Report 8986820 (Version 5)
Quarter: 2013Q2

REPORT INFORMATION
  Report Type: Report from Study
  Country: DE (occurrence: DE)
  Receive Date: 20121227
  Receipt Date: 20130412
  Transmission Date: 20140414
  Serious: Yes (Other)
  Sender: FDA-Public Use
  Company Number: PHHO2012DE018398

PATIENT
  Age: 77 Year
  Sex: Female
  Weight: 81.3 kg

DRUGS (9)
  1. EXFORGE [Suspect]
     Indication: CARDIAC FAILURE CHRONIC
     Dates: start: 20121205, end: 20121220
  2. PLACEBO [Suspect]
     Indication: CARDIAC FAILURE ACUTE
     Route: 042
     Dates: start: 20121120
  3. CYNT ^BEIERSDORF^ [Concomitant]
     Indication: CARDIAC FAILURE CHRONIC
     Dosage: 0.2 MG, BID
     Dates: start: 20121205
  4. DOXAZOSIN [Concomitant]
     Indication: CARDIAC FAILURE CHRONIC
     Dosage: 2 MG, BID
     Dates: start: 20100803
  5. ENALAPRIL [Concomitant]
     Indication: CARDIAC FAILURE CHRONIC
     Dosage: 20 MG, BID
     Dates: start: 20100803
  6. METOPROLOL [Concomitant]
     Indication: CARDIAC FAILURE CHRONIC
     Dosage: 95 MG, BID
     Dates: start: 20100803
  7. GLUCOPHAGE [Concomitant]
     Indication: TYPE 2 DIABETES MELLITUS
     Dosage: 1000 MG, QD
     Dates: start: 20100803
  8. DIURETICS [Concomitant]
  9. TOREM [Concomitant]
     Indication: CARDIAC FAILURE CHRONIC
     Dosage: 10 MG, BID
     Dates: start: 20121205, end: 20121220

REACTIONS (1)
  - Hypotension [Recovered/Resolved]
